FAERS Safety Report 25739458 (Version 3)
Quarter: 2025Q3

REPORT INFORMATION
  Report Type: Spontaneous
  Country: JP (occurrence: JP)
  Receive Date: 20250829
  Receipt Date: 20250920
  Transmission Date: 20251021
  Serious: Yes (Death, Hospitalization, Other)
  Sender: ALEXION PHARMACEUTICALS
  Company Number: JP-ASTRAZENECA-202508JPN021110JP

PATIENT
  Age: 8 Decade
  Sex: Male
  Weight: 52.6 kg

DRUGS (1)
  1. DAPAGLIFLOZIN [Suspect]
     Active Substance: DAPAGLIFLOZIN
     Indication: Cardiac failure

REACTIONS (9)
  - Death [Fatal]
  - Myocardial infarction [Unknown]
  - Vagus nerve disorder [Unknown]
  - Cardio-respiratory arrest [Unknown]
  - Cardiac failure chronic [Unknown]
  - Renal impairment [Unknown]
  - Low cardiac output syndrome [Unknown]
  - Mouth breathing [Unknown]
  - Immobilisation syndrome [Unknown]
